FAERS Safety Report 23925489 (Version 1)
Quarter: 2024Q2

REPORT INFORMATION
  Report Type: Spontaneous
  Country: CN (occurrence: None)
  Receive Date: 20240531
  Receipt Date: 20240531
  Transmission Date: 20240716
  Serious: Yes (Other)
  Sender: FDA-Public Use
  Company Number: 2024A124471

PATIENT
  Age: 57 Year
  Sex: Male
  Weight: 74 kg

DRUGS (2)
  1. DAPAGLIFLOZIN [Suspect]
     Active Substance: DAPAGLIFLOZIN
     Indication: Diabetes mellitus
     Route: 048
     Dates: start: 20240507, end: 20240521
  2. SAXAGLIPTIN AND METFORMIN HYDROCHLORIDE SUSTAINED-RELEASE TABLETS (I) [Concomitant]
     Indication: Diabetes mellitus
     Route: 048
     Dates: start: 20240507, end: 20240524

REACTIONS (1)
  - Urine ketone body present [Unknown]

NARRATIVE: CASE EVENT DATE: 20240521
